FAERS Safety Report 12587349 (Version 1)
Quarter: 2016Q3

REPORT INFORMATION
  Report Type: Report from Study
  Country: IN (occurrence: IN)
  Receive Date: 20160725
  Receipt Date: 20160725
  Transmission Date: 20161109
  Serious: Yes (Death)
  Sender: FDA-Public Use
  Company Number: IN-CIPLA LTD.-2016IN08313

PATIENT

DRUGS (7)
  1. ARMOTRAZ [Suspect]
     Active Substance: ANASTROZOLE
     Indication: BREAST CANCER METASTATIC
     Dosage: 1 MG, QD
     Route: 048
     Dates: start: 20110511, end: 20110606
  2. PANTOPRAZOLE [Concomitant]
     Active Substance: PANTOPRAZOLE SODIUM
     Indication: DYSPEPSIA
     Dosage: 40 MG, QD
     Route: 042
     Dates: start: 20110601, end: 20110601
  3. PROMETHAZINE [Concomitant]
     Active Substance: PROMETHAZINE\PROMETHAZINE HYDROCHLORIDE
     Indication: ALLERGY PROPHYLAXIS
     Dosage: 25 MG, QD
     Route: 030
     Dates: start: 20110601, end: 20110601
  4. PACLITAXEL PROTEIN-BOUND PARTICLES [Suspect]
     Active Substance: PACLITAXEL
     Indication: BREAST CANCER METASTATIC
     Dosage: 299.2 MG, PER 21 DAYS
     Route: 042
     Dates: start: 20110511, end: 20110511
  5. ONDANSETRON [Concomitant]
     Active Substance: ONDANSETRON
     Indication: PROPHYLAXIS OF NAUSEA AND VOMITING
     Dosage: 16 MG, QD
     Route: 042
     Dates: start: 20110601, end: 20110601
  6. DEXAMETHASONE. [Concomitant]
     Active Substance: DEXAMETHASONE
     Indication: INFLAMMATION
     Dosage: 8 MG, QD
     Route: 042
  7. PACLITAXEL PROTEIN-BOUND PARTICLES [Suspect]
     Active Substance: PACLITAXEL
     Dosage: 302.75 MG, PER 21 DAYS
     Route: 042
     Dates: start: 20110601, end: 20110601

REACTIONS (1)
  - Disease progression [Fatal]

NARRATIVE: CASE EVENT DATE: 20110607
